FAERS Safety Report 10581843 (Version 1)
Quarter: 2014Q4

REPORT INFORMATION
  Report Type: Report from Study
  Country: US (occurrence: US)
  Receive Date: 20141113
  Receipt Date: 20141113
  Transmission Date: 20150529
  Serious: Yes (Death, Other)
  Sender: FDA-Public Use
  Company Number: US-TEVA-521044USA

PATIENT
  Age: 66 Year

DRUGS (4)
  1. TREANDA [Suspect]
     Active Substance: BENDAMUSTINE HYDROCHLORIDE
     Dosage: 128 MILLIGRAM DAILY; SEQ 2
     Route: 042
     Dates: start: 20130907, end: 20130910
  2. RITUXAN [Suspect]
     Active Substance: RITUXIMAB
     Indication: CHRONIC LYMPHOCYTIC LEUKAEMIA
     Dosage: 690 MILLIGRAM DAILY; SEQ 1
     Route: 042
     Dates: start: 20110824, end: 20130909
  3. TREANDA [Suspect]
     Active Substance: BENDAMUSTINE HYDROCHLORIDE
     Indication: CHRONIC LYMPHOCYTIC LEUKAEMIA
     Dosage: 128 MILLIGRAM DAILY; SEQ 1
     Route: 042
     Dates: start: 20110824, end: 20130910
  4. RITUXAN [Suspect]
     Active Substance: RITUXIMAB
     Dosage: 690 MILLIGRAM DAILY; SEQ 2
     Dates: start: 20130708, end: 20130812

REACTIONS (3)
  - Hyperkalaemia [Unknown]
  - Chronic lymphocytic leukaemia [Fatal]
  - Hyponatraemia [Unknown]

NARRATIVE: CASE EVENT DATE: 20111128
